FAERS Safety Report 8507610-0 (Version None)
Quarter: 2012Q3

REPORT INFORMATION
  Report Type: 
  Country: None (occurrence: None)
  Receive Date: 20120713
  Receipt Date: 20120705
  Transmission Date: 20120928
  Serious: No
  Sender: FDA-Public Use
  Company Number: US-BIOGENIDEC-2012BI008213

PATIENT
  Sex: Male

DRUGS (2)
  1. TYSABRI [Suspect]
     Indication: MULTIPLE SCLEROSIS
     Route: 042
     Dates: start: 20110124, end: 20120503
  2. FLOMAX [Concomitant]
     Indication: URINARY TRACT DISORDER
     Dates: start: 20080301

REACTIONS (7)
  - RASH PUSTULAR [None]
  - MULTIPLE SCLEROSIS RELAPSE [None]
  - PARAESTHESIA [None]
  - CARDIAC DISORDER [None]
  - EAR HAEMORRHAGE [None]
  - OEDEMA [None]
  - VASCULAR RUPTURE [None]
